FAERS Safety Report 5247995-4 (Version None)
Quarter: 2007Q1

REPORT INFORMATION
  Report Type: 
  Country: None (occurrence: None)
  Receive Date: 20070226
  Receipt Date: 20070226
  Transmission Date: 20070707
  Serious: Yes (Disabling)
  Sender: FDA-Public Use
  Company Number: None

PATIENT
  Age: 23 Year
  Sex: Male
  Weight: 81.6475 kg

DRUGS (1)
  1. RITALIN [Suspect]
     Indication: ATTENTION DEFICIT/HYPERACTIVITY DISORDER
     Dosage: UNKNOWN DAILY PO
     Route: 048
     Dates: start: 19930101, end: 20050531

REACTIONS (4)
  - HALLUCINATION, AUDITORY [None]
  - MANIA [None]
  - MENTAL IMPAIRMENT [None]
  - PARANOIA [None]
